FAERS Safety Report 9582398 (Version 1)
Quarter: 2013Q4

REPORT INFORMATION
  Report Type: Spontaneous
  Country: US (occurrence: US)
  Receive Date: 20131002
  Receipt Date: 20131002
  Transmission Date: 20140711
  Serious: Yes (Hospitalization)
  Sender: FDA-Public Use
  Company Number: US-RB-058878-13

PATIENT
  Age: 60 Year
  Sex: Male

DRUGS (3)
  1. SUBOXONE FILM [Suspect]
     Dosage: SUBOXONE FILM; DOSING DETAILS UNKNOWN
     Route: 060
     Dates: end: 201305
  2. SUBOXONE FILM [Suspect]
     Indication: DRUG DEPENDENCE
     Dosage: SUBOXONE FILM; THE PATIENT TRIED TO WEAN HIMSELF AND WAS TAKING LEES THAN PRESCRIBED
     Route: 060
     Dates: start: 2013
  3. XANAX [Suspect]
     Indication: ANXIETY
     Dosage: DOSING DETAILS UNKNOWN
     Route: 048

REACTIONS (5)
  - Constipation [Not Recovered/Not Resolved]
  - Tooth disorder [Not Recovered/Not Resolved]
  - Fall [Recovered/Resolved]
  - Concussion [Recovered/Resolved]
  - Underdose [Not Recovered/Not Resolved]
